FAERS Safety Report 26216471 (Version 1)
Quarter: 2025Q4

REPORT INFORMATION
  Report Type: Spontaneous
  Country: GB (occurrence: GB)
  Receive Date: 20251231
  Receipt Date: 20251231
  Transmission Date: 20260117
  Serious: Yes (Other)
  Sender: ACCORD
  Company Number: None

PATIENT
  Age: 80 Year
  Sex: Male
  Weight: 59 kg

DRUGS (13)
  1. APIXABAN [Suspect]
     Active Substance: APIXABAN
     Indication: Ill-defined disorder
     Dosage: STRENGTH: 5MG
     Dates: start: 20251219
  2. FLUCLOXACILLIN [Concomitant]
     Active Substance: FLUCLOXACILLIN
     Indication: Ill-defined disorder
     Dosage: TAKE ONE FOUR TIMES A DAY
     Dates: start: 20251201, end: 20251208
  3. FUSIDIC ACID [Concomitant]
     Active Substance: FUSIDIC ACID
     Indication: Ill-defined disorder
     Dosage: USE TO AFFECTED AREAS OF SKIN 4 T...
     Dates: start: 20251217
  4. APIXABAN [Concomitant]
     Active Substance: APIXABAN
     Indication: Ill-defined disorder
     Dosage: TAKE ONE TWICE DAILY
     Dates: start: 20250616
  5. ATORVASTATIN [Concomitant]
     Active Substance: ATORVASTATIN
     Indication: Ill-defined disorder
     Dosage: TAKE ONE DAILY IN THE EVENING
     Dates: start: 20250616
  6. BISOPROLOL [Concomitant]
     Active Substance: BISOPROLOL
     Indication: Ill-defined disorder
     Dosage: TAKE ONE DAILY
     Dates: start: 20250616
  7. CANDESARTAN [Concomitant]
     Active Substance: CANDESARTAN
     Indication: Ill-defined disorder
     Dosage: TAKE ONE ONCE DAILY AT NIGHT
     Dates: start: 20250616
  8. DIGOXIN [Concomitant]
     Active Substance: DIGOXIN
     Indication: Ill-defined disorder
     Dosage: TAKE ONE DAILY IN THE MORNING
     Dates: start: 20250616
  9. VITAMIN D [Concomitant]
     Active Substance: VITAMIN D NOS
     Indication: Ill-defined disorder
     Dosage: TAKE ONE DAILY
     Dates: start: 20250616
  10. LANSOPRAZOLE [Concomitant]
     Active Substance: LANSOPRAZOLE
     Indication: Ill-defined disorder
     Dosage: TAKE ONE DAILY AT LEAST 40MIN BEFORE EATING
     Dates: start: 20250616
  11. PREDNISOLONE [Concomitant]
     Active Substance: PREDNISOLONE
     Indication: Ill-defined disorder
     Dosage: THREE PER DAY
     Dates: start: 20250616
  12. SERTRALINE [Concomitant]
     Active Substance: SERTRALINE HYDROCHLORIDE
     Indication: Ill-defined disorder
     Dosage: TAKE ONE DAILY
     Dates: start: 20250616
  13. SPIRONOLACTONE [Concomitant]
     Active Substance: SPIRONOLACTONE
     Indication: Ill-defined disorder
     Dosage: TAKE ONE DAILY IN THE MORNING
     Dates: start: 20250616

REACTIONS (1)
  - Raynaud^s phenomenon [Not Recovered/Not Resolved]

NARRATIVE: CASE EVENT DATE: 20251219
